FAERS Safety Report 22736901 (Version 2)
Quarter: 2024Q2

REPORT INFORMATION
  Report Type: Spontaneous
  Country: US (occurrence: US)
  Receive Date: 20230721
  Receipt Date: 20240606
  Transmission Date: 20240716
  Serious: No
  Sender: FDA-Public Use
  Company Number: US-MYLANLABS-2023M1076702

PATIENT

DRUGS (1)
  1. XANAX [Suspect]
     Active Substance: ALPRAZOLAM
     Indication: Product used for unknown indication
     Dosage: 1 MILLIGRAM, Q6H (TAKE 1 MG BY MOUTH EVERY 6 (SIX) HOURS AS NEEDED)
     Route: 065

REACTIONS (1)
  - Off label use [Unknown]
